FAERS Safety Report 24229948 (Version 1)
Quarter: 2024Q3

REPORT INFORMATION
  Report Type: Spontaneous
  Country: SG (occurrence: SG)
  Receive Date: 20240820
  Receipt Date: 20240820
  Transmission Date: 20241017
  Serious: Yes (Death, Other)
  Sender: ALEXION PHARMACEUTICALS
  Company Number: SG-AstraZeneca-CH-00680453A

PATIENT
  Sex: Male

DRUGS (1)
  1. SOLIRIS [Suspect]
     Active Substance: ECULIZUMAB
     Indication: Atypical haemolytic uraemic syndrome
     Dosage: 600 MILLIGRAM, QW
     Route: 041
     Dates: start: 20240719

REACTIONS (3)
  - Complications of bone marrow transplant [Fatal]
  - Atypical haemolytic uraemic syndrome [Fatal]
  - Disease progression [Fatal]
